FAERS Safety Report 6816470-5 (Version None)
Quarter: 2010Q3

REPORT INFORMATION
  Report Type: 
  Country: None (occurrence: None)
  Receive Date: 20100705
  Receipt Date: 20100630
  Transmission Date: 20110219
  Serious: Yes (Life-Threatening, Hospitalization, Other)
  Sender: FDA-Public Use
  Company Number: GB-SANOFI-AVENTIS-2010SA032056

PATIENT
  Age: 36 Year
  Sex: Male

DRUGS (5)
  1. OXALIPLATIN [Suspect]
     Indication: COLON CANCER
     Route: 041
     Dates: start: 20100513, end: 20100513
  2. OXALIPLATIN [Suspect]
     Route: 041
  3. CAPECITABINE [Suspect]
     Indication: COLON CANCER
     Route: 048
  4. CAPECITABINE [Suspect]
     Route: 048
     Dates: start: 20100513, end: 20100515
  5. AZATHIOPRINE [Suspect]
     Route: 048

REACTIONS (3)
  - DRUG INTERACTION [None]
  - NON-CARDIAC CHEST PAIN [None]
  - THROMBOCYTOPENIA [None]
